FAERS Safety Report 16269072 (Version 1)
Quarter: 2019Q2

REPORT INFORMATION
  Report Type: Spontaneous
  Country: US (occurrence: US)
  Receive Date: 20190328
  Receipt Date: 20190328
  Transmission Date: 20190711
  Serious: Yes (Hospitalization)
  Sender: FDA-Public Use
  Company Number: None

PATIENT
  Age: 30 Year
  Sex: Female
  Weight: 76.2 kg

DRUGS (1)
  1. AMOXICILLIN/CLAVULANATE [Suspect]
     Active Substance: AMOXICILLIN\CLAVULANATE POTASSIUM
     Indication: UPPER RESPIRATORY TRACT INFECTION
     Dosage: ?          OTHER DOSE:875/125 MG;?
     Route: 048
     Dates: start: 20190121, end: 20190126

REACTIONS (2)
  - Drug-induced liver injury [None]
  - Toxicity to various agents [None]

NARRATIVE: CASE EVENT DATE: 20190126
